FAERS Safety Report 8343527-2 (Version None)
Quarter: 2012Q2

REPORT INFORMATION
  Report Type: 
  Country: None (occurrence: None)
  Receive Date: 20120503
  Receipt Date: 20120503
  Transmission Date: 20120825
  Serious: Yes (Hospitalization)
  Sender: FDA-Public Use
  Company Number: None

PATIENT
  Sex: Female
  Weight: 51 kg

DRUGS (5)
  1. PEG-L ASPARAGINASE (K-H) [Suspect]
     Dosage: 3825 IU
  2. DAUNORUBICIN HYDROCHLORIDE [Suspect]
     Dosage: 76 MG
  3. VINCRISTINE SULFATE [Suspect]
     Dosage: 4 MG
  4. CYTARABINE [Suspect]
     Dosage: 70 MG
  5. METHOTREXATE [Suspect]
     Dosage: 15 MG

REACTIONS (1)
  - PANCREATITIS ACUTE [None]
